FAERS Safety Report 6612386-8 (Version None)
Quarter: 2010Q1

REPORT INFORMATION
  Report Type: 
  Country: None (occurrence: None)
  Receive Date: 20100201
  Receipt Date: 20081119
  Transmission Date: 20100710
  Serious: No
  Sender: FDA-Public Use
  Company Number: CA-144907

PATIENT
  Age: 57 Year
  Sex: Female
  Weight: 70.7611 kg

DRUGS (1)
  1. WINRHO [Suspect]
     Indication: IDIOPATHIC THROMBOCYTOPENIC PURPURA
     Dosage: 73.49 UG/KG TOTAL INTRAVENOUS
     Route: 042
     Dates: start: 20081113, end: 20081118

REACTIONS (9)
  - ARTHRALGIA [None]
  - CHILLS [None]
  - CHROMATURIA [None]
  - FATIGUE [None]
  - HEADACHE [None]
  - MYALGIA [None]
  - NASAL CONGESTION [None]
  - PYREXIA [None]
  - SNEEZING [None]
